FAERS Safety Report 10510862 (Version 1)
Quarter: 2014Q4

REPORT INFORMATION
  Report Type: Spontaneous
  Country: JP (occurrence: JP)
  Receive Date: 20141010
  Receipt Date: 20141010
  Transmission Date: 20150528
  Serious: Yes (Death)
  Sender: FDA-Public Use
  Company Number: JP-SA-2014SA139332

PATIENT
  Age: 90 Year
  Sex: Female

DRUGS (9)
  1. HERBESSER [Suspect]
     Active Substance: DILTIAZEM HYDROCHLORIDE
     Route: 048
  2. PLAVIX [Suspect]
     Active Substance: CLOPIDOGREL BISULFATE
     Route: 048
  3. ZANTAC [Suspect]
     Active Substance: RANITIDINE HYDROCHLORIDE
     Route: 048
  4. MEVALOTIN [Suspect]
     Active Substance: PRAVASTATIN SODIUM
     Route: 048
  5. AMARYL [Suspect]
     Active Substance: GLIMEPIRIDE
     Route: 048
  6. ADALAT CC [Suspect]
     Active Substance: NIFEDIPINE
     Route: 048
  7. TRAZENTA [Suspect]
     Active Substance: LINAGLIPTIN
     Route: 048
  8. BAYASPIRIN [Suspect]
     Active Substance: ASPIRIN
     Route: 048
  9. BLOPRESS [Suspect]
     Active Substance: CANDESARTAN CILEXETIL
     Route: 048

REACTIONS (2)
  - Death [Fatal]
  - Overdose [Unknown]
